FAERS Safety Report 23590288 (Version 4)
Quarter: 2024Q2

REPORT INFORMATION
  Report Type: Spontaneous
  Country: US (occurrence: US)
  Receive Date: 20240304
  Receipt Date: 20240405
  Transmission Date: 20240715
  Serious: No
  Sender: FDA-Public Use
  Company Number: US-AMGEN-USASP2024041486

PATIENT
  Age: 55 Year
  Sex: Female

DRUGS (2)
  1. NEULASTA [Suspect]
     Active Substance: PEGFILGRASTIM
     Indication: Prophylaxis
     Dosage: UNK
     Route: 065
  2. NEULASTA [Suspect]
     Active Substance: PEGFILGRASTIM
     Dosage: UNK
     Route: 065

REACTIONS (9)
  - Accidental exposure to product [Unknown]
  - Drug dose omission by device [Unknown]
  - Device issue [Unknown]
  - Brain fog [Unknown]
  - Device use error [Unknown]
  - Product communication issue [Unknown]
  - Device use error [Unknown]
  - Device issue [Unknown]
  - Application site haemorrhage [Unknown]

NARRATIVE: CASE EVENT DATE: 20240226
